FAERS Safety Report 20222474 (Version 8)
Quarter: 2022Q4

REPORT INFORMATION
  Report Type: Report from Study
  Country: CO (occurrence: CO)
  Receive Date: 20211223
  Receipt Date: 20221118
  Transmission Date: 20230112
  Serious: Yes (Death, Life-Threatening, Hospitalization)
  Sender: FDA-Public Use
  Company Number: CO-NOVARTISPH-NVSC2021CO293387

PATIENT
  Sex: Female
  Weight: 60 kg

DRUGS (6)
  1. KISQALI [Suspect]
     Active Substance: RIBOCICLIB
     Indication: Breast cancer metastatic
     Dosage: 3 DOSAGE FORM, QD
     Route: 048
     Dates: start: 20211116
  2. KISQALI [Suspect]
     Active Substance: RIBOCICLIB
     Dosage: 600 MG, QD
     Route: 048
  3. FEMARA [Suspect]
     Active Substance: LETROZOLE
     Indication: Breast cancer
     Dosage: 1 DOSAGE FORM, QD
     Route: 048
     Dates: start: 20211116
  4. FEMARA [Suspect]
     Active Substance: LETROZOLE
     Dosage: 2.5 MG, QD
     Route: 048
  5. LOSARTAN [Suspect]
     Active Substance: LOSARTAN
     Indication: Hypertension
     Dosage: UNK UNK, QD
     Route: 048
  6. OMEPRAZOLE [Concomitant]
     Active Substance: OMEPRAZOLE
     Indication: Gastritis
     Dosage: UNK, QD
     Route: 048

REACTIONS (16)
  - Death [Fatal]
  - Pulmonary oedema [Unknown]
  - Vomiting [Unknown]
  - Musculoskeletal chest pain [Unknown]
  - Abdominal discomfort [Not Recovered/Not Resolved]
  - Feeling abnormal [Not Recovered/Not Resolved]
  - Fluid retention [Not Recovered/Not Resolved]
  - Back pain [Unknown]
  - Abdominal pain upper [Not Recovered/Not Resolved]
  - Feeding disorder [Unknown]
  - Somnolence [Unknown]
  - Speech disorder [Unknown]
  - Discouragement [Unknown]
  - Fatigue [Unknown]
  - Constipation [Recovered/Resolved]
  - Asthenia [Not Recovered/Not Resolved]
